FAERS Safety Report 4590351-2 (Version None)
Quarter: 2005Q1

REPORT INFORMATION
  Report Type: 
  Country: None (occurrence: None)
  Receive Date: 20050217
  Receipt Date: 20050201
  Transmission Date: 20050727
  Serious: Yes (Hospitalization)
  Sender: FDA-Public Use
  Company Number: DSA_25226_2004

PATIENT
  Age: 59 Year
  Sex: Female
  Weight: 59.8748 kg

DRUGS (12)
  1. CARDIZEM LA [Suspect]
     Indication: HYPERTENSION
     Dosage: 240 MG Q DAY PO
     Route: 048
  2. CARDIZEM [Suspect]
     Dosage: DF
     Dates: start: 19800101
  3. CARDIZEM LA [Suspect]
     Indication: HYPERTENSION
     Dosage: DF PO
     Route: 048
  4. METFORMIN [Suspect]
     Indication: DIABETES MELLITUS
     Dosage: 500 MG Q DAY PO
     Route: 048
     Dates: start: 20031001, end: 20040401
  5. PLAVIX [Concomitant]
  6. ZOCOR [Concomitant]
  7. NEURONTIN [Concomitant]
  8. AVONEX [Concomitant]
  9. DIOVAN [Concomitant]
  10. ACIPHEX [Concomitant]
  11. MULTI-VITAMINS [Concomitant]
  12. CALCIUM GLUCONATE [Concomitant]

REACTIONS (10)
  - ASTHENIA [None]
  - CEREBROVASCULAR ACCIDENT [None]
  - CHRONIC SINUSITIS [None]
  - DEHYDRATION [None]
  - DIABETES MELLITUS [None]
  - DYSGEUSIA [None]
  - DYSSTASIA [None]
  - MALAISE [None]
  - VOMITING [None]
  - WEIGHT DECREASED [None]
